FAERS Safety Report 9364746 (Version 1)
Quarter: 2013Q2

REPORT INFORMATION
  Report Type: Spontaneous
  Country: SE (occurrence: SE)
  Receive Date: 20130624
  Receipt Date: 20130624
  Transmission Date: 20140414
  Serious: Yes (Hospitalization)
  Sender: FDA-Public Use
  Company Number: SE-JNJFOC-20130611821

PATIENT
  Age: 52 Year
  Sex: Male

DRUGS (1)
  1. IPREN [Suspect]
     Indication: LIMB INJURY
     Route: 065

REACTIONS (6)
  - Hypersensitivity [Unknown]
  - Urticaria [Unknown]
  - Pruritus [Unknown]
  - Oedema mouth [Unknown]
  - Pharyngeal oedema [Unknown]
  - Dysphagia [None]
